FAERS Safety Report 7147803-0 (Version None)
Quarter: 2010Q4

REPORT INFORMATION
  Report Type: 
  Country: None (occurrence: None)
  Receive Date: 20101209
  Receipt Date: 20100219
  Transmission Date: 20110411
  Serious: No
  Sender: FDA-Public Use
  Company Number: 2010BI005893

PATIENT
  Age: 42 Year
  Sex: Female

DRUGS (1)
  1. TYSABRI [Suspect]
     Indication: MULTIPLE SCLEROSIS
     Route: 042
     Dates: start: 20091125, end: 20100930

REACTIONS (2)
  - DRUG INEFFECTIVE [None]
  - MUSCULAR WEAKNESS [None]
